FAERS Safety Report 4290596-5 (Version None)
Quarter: 2004Q1

REPORT INFORMATION
  Report Type: 
  Country: None (occurrence: None)
  Receive Date: 20040209
  Receipt Date: 20040129
  Transmission Date: 20041129
  Serious: Yes (Hospitalization)
  Sender: FDA-Public Use
  Company Number: 2004PK00248

PATIENT
  Age: 75 Year
  Sex: Female

DRUGS (1)
  1. NOLVADEX [Suspect]
     Indication: BREAST CANCER
     Dosage: 20 MG DAILY PO
     Route: 048
     Dates: start: 20030723, end: 20040108

REACTIONS (3)
  - FEMORAL ARTERIAL STENOSIS [None]
  - PAIN IN EXTREMITY [None]
  - POPLITEAL STENOSIS [None]
